FAERS Safety Report 8942238 (Version 1)
Quarter: 2012Q4

REPORT INFORMATION
  Report Type: Spontaneous
  Country: US (occurrence: None)
  Receive Date: 20121129
  Receipt Date: 20121129
  Transmission Date: 20130627
  Serious: No
  Sender: FDA-Public Use
  Company Number: None

PATIENT
  Age: 56 Year
  Sex: Female
  Weight: 74.2 kg

DRUGS (1)
  1. BELIMUMAB [Suspect]
     Indication: SLE
     Dosage: MG
     Dates: start: 20120613, end: 20120613

REACTIONS (11)
  - Nausea [None]
  - Diarrhoea [None]
  - Bone pain [None]
  - Pain in extremity [None]
  - Spinal pain [None]
  - Pain in extremity [None]
  - Depression [None]
  - Myalgia [None]
  - Arthralgia [None]
  - Vomiting [None]
  - Rhinorrhoea [None]
